FAERS Safety Report 19292039 (Version 3)
Quarter: 2021Q4

REPORT INFORMATION
  Report Type: Other
  Country: JP (occurrence: JP)
  Receive Date: 20210524
  Receipt Date: 20211103
  Transmission Date: 20220303
  Serious: Yes (Hospitalization, Other)
  Sender: FDA-Public Use
  Company Number: JP-CHUGAI-2021000652AA

PATIENT
  Age: 67 Year

DRUGS (18)
  1. ATEZOLIZUMAB [Suspect]
     Active Substance: ATEZOLIZUMAB
     Indication: Non-small cell lung cancer
     Dosage: 1200 MILLIGRAM, ONCE/3WEEKS
     Route: 041
     Dates: start: 20201204, end: 20201225
  2. ATEZOLIZUMAB [Suspect]
     Active Substance: ATEZOLIZUMAB
     Dosage: 1200 MILLIGRAM, ONCE/3WEEKS
     Route: 041
     Dates: start: 20210329
  3. ATEZOLIZUMAB [Suspect]
     Active Substance: ATEZOLIZUMAB
     Dosage: 351 MILLIGRAM, ONCE/3WEEKS
     Route: 041
     Dates: start: 20201204, end: 20201225
  4. ATEZOLIZUMAB [Suspect]
     Active Substance: ATEZOLIZUMAB
     Dosage: 351 MILLIGRAM, ONCE/3WEEKS
     Route: 041
     Dates: start: 20210329, end: 20210421
  5. ATEZOLIZUMAB [Suspect]
     Active Substance: ATEZOLIZUMAB
     Dosage: 152 MILLIGRAM, ONCE/3WEEKS
     Route: 041
     Dates: start: 20201204, end: 20201225
  6. ATEZOLIZUMAB [Suspect]
     Active Substance: ATEZOLIZUMAB
     Dosage: 152 MILLIGRAM, ONCE/3WEEKS
     Route: 041
     Dates: start: 20210329, end: 20210508
  7. BEVACIZUMAB [Suspect]
     Active Substance: BEVACIZUMAB
     Indication: Non-small cell lung cancer
     Dosage: 637 MILLIGRAM, ONCE/3WEEKS
     Route: 041
     Dates: start: 20201204, end: 20201225
  8. BEVACIZUMAB [Suspect]
     Active Substance: BEVACIZUMAB
     Dosage: 637 MILLIGRAM, ONCE/3WEEKS
     Route: 041
     Dates: start: 20210329, end: 20210508
  9. CARBOPLATIN [Suspect]
     Active Substance: CARBOPLATIN
     Indication: Non-small cell lung cancer
     Dosage: 351 MILLIGRAM, ONCE/3WEEKS
     Route: 041
     Dates: start: 20201204, end: 20201225
  10. CARBOPLATIN [Suspect]
     Active Substance: CARBOPLATIN
     Dosage: 351 MILLIGRAM, ONCE/3WEEKS
     Route: 041
     Dates: start: 20210329, end: 20210508
  11. PACLITAXEL [Suspect]
     Active Substance: PACLITAXEL
     Indication: Non-small cell lung cancer
     Dosage: 152 MILLIGRAM, ONCE/3WEEKS
     Route: 041
     Dates: start: 20201204, end: 20201225
  12. PACLITAXEL [Suspect]
     Active Substance: PACLITAXEL
     Dosage: 152 MILLIGRAM, ONCE/3WEEKS
     Route: 041
     Dates: start: 20210329, end: 20210508
  13. PRANLUKAST [Concomitant]
     Active Substance: PRANLUKAST
     Indication: Asthma
     Dosage: 450 MILLIGRAM, QD
     Route: 065
  14. PRANLUKAST [Concomitant]
     Active Substance: PRANLUKAST
     Indication: Asthma
     Dosage: UNK
     Route: 065
  15. PRANLUKAST [Concomitant]
     Active Substance: PRANLUKAST
     Indication: Prophylaxis
     Dosage: UNK
     Route: 065
     Dates: start: 20210421, end: 20210423
  16. ZOLPIDEM TARTRATE [Concomitant]
     Active Substance: ZOLPIDEM TARTRATE
     Indication: Asthma
     Dosage: 5 MILLIGRAM, QD
     Route: 065
  17. EPINASTINE [Concomitant]
     Active Substance: EPINASTINE
     Indication: Asthma
     Dosage: UNK
     Route: 065
  18. APREPITANT [Concomitant]
     Active Substance: APREPITANT
     Indication: Asthma
     Dosage: UNK
     Route: 065
     Dates: start: 20210421, end: 20210423

REACTIONS (7)
  - Pulmonary haemorrhage [Recovering/Resolving]
  - Oesophageal stenosis [Unknown]
  - Pulmonary haemorrhage [Unknown]
  - Peripheral motor neuropathy [Unknown]
  - Rash [Unknown]
  - Skin exfoliation [Unknown]
  - Epistaxis [Unknown]

NARRATIVE: CASE EVENT DATE: 20201207
